FAERS Safety Report 4333837-8 (Version None)
Quarter: 2004Q2

REPORT INFORMATION
  Report Type: 
  Country: None (occurrence: None)
  Receive Date: 20040402
  Receipt Date: 20040325
  Transmission Date: 20050107
  Serious: Yes (Hospitalization, Other)
  Sender: FDA-Public Use
  Company Number: 2004007224

PATIENT
  Age: 72 Year
  Sex: Male
  Weight: 100.2449 kg

DRUGS (6)
  1. ACCUPRIL [Suspect]
     Indication: BLOOD PRESSURE
     Dosage: 20 MG (DAILY), ORAL
     Route: 048
     Dates: start: 20000101, end: 20030701
  2. ROSIGLITAZONE MALEATE [Suspect]
     Indication: ILL-DEFINED DISORDER
     Dates: end: 20030601
  3. METOPROLOL (METOPROLOL) [Concomitant]
  4. ISOSORBIDE (ISOSORBIDE) [Concomitant]
  5. ESOMEPRAZOLE (ESOMEPRAZOLE) [Concomitant]
  6. ISMO [Concomitant]

REACTIONS (6)
  - ABDOMINAL PAIN UPPER [None]
  - BACK PAIN [None]
  - DIARRHOEA [None]
  - NAUSEA [None]
  - VOMITING [None]
  - WEIGHT DECREASED [None]
